FAERS Safety Report 8415349-5 (Version None)
Quarter: 2012Q2

REPORT INFORMATION
  Report Type: 
  Country: None (occurrence: None)
  Receive Date: 20120606
  Receipt Date: 20120530
  Transmission Date: 20120825
  Serious: Yes (Hospitalization, Other)
  Sender: FDA-Public Use
  Company Number: PHHY2012DE046894

PATIENT
  Sex: Male
  Weight: 60 kg

DRUGS (2)
  1. RANITIDINE [Concomitant]
     Indication: PROPHYLAXIS AGAINST GASTROINTESTINAL ULCER
     Dosage: 300 MG, ONCE DAILY
     Route: 048
     Dates: start: 20110511, end: 20110513
  2. INTERFERON BETA-1B [Suspect]
     Indication: MULTIPLE SCLEROSIS
     Dosage: (250 MCG/ ML) 1 ML, QOD
     Route: 058
     Dates: start: 20020610

REACTIONS (8)
  - MALAISE [None]
  - MULTIPLE SCLEROSIS RELAPSE [None]
  - EXPANDED DISABILITY STATUS SCALE SCORE INCREASED [None]
  - ATAXIA [None]
  - GAIT DISTURBANCE [None]
  - SENSORY DISTURBANCE [None]
  - BLOOD PRESSURE INCREASED [None]
  - ABSCESS LIMB [None]
